FAERS Safety Report 7392592-8 (Version None)
Quarter: 2011Q2

REPORT INFORMATION
  Report Type: 
  Country: None (occurrence: None)
  Receive Date: 20110404
  Receipt Date: 20110330
  Transmission Date: 20111010
  Serious: Yes (Other)
  Sender: FDA-Public Use
  Company Number: US-CEPHALON-2011001540

PATIENT
  Age: 44 Year
  Sex: Male

DRUGS (6)
  1. CIMETIDINE [Concomitant]
  2. TREANDA [Suspect]
     Indication: B-CELL LYMPHOMA
     Route: 042
     Dates: start: 20100201, end: 20100701
  3. DECADRON [Concomitant]
  4. ACETAMINOPHEN [Concomitant]
  5. PSEUDOEPHEDRINE HCL [Concomitant]
  6. RITUXAN [Concomitant]

REACTIONS (6)
  - SYNOVIAL CYST [None]
  - PHLEBITIS [None]
  - PAIN IN EXTREMITY [None]
  - JOINT CREPITATION [None]
  - OSTEOARTHRITIS [None]
  - MUSCULOSKELETAL STIFFNESS [None]
